FAERS Safety Report 15521555 (Version 1)
Quarter: 2018Q4

REPORT INFORMATION
  Report Type: Spontaneous
  Country: US (occurrence: US)
  Receive Date: 20181018
  Receipt Date: 20181018
  Transmission Date: 20190205
  Serious: Yes (Other)
  Sender: FDA-Public Use
  Company Number: None

PATIENT
  Age: 70 Year
  Sex: Male
  Weight: 85.73 kg

DRUGS (3)
  1. MMS2 400MG MMS PRODUCTS INTERNATIONAL [Suspect]
     Active Substance: CALCIUM HYPOCHLORITE
     Indication: PROPHYLAXIS
     Dosage: ?          OTHER DOSE:2 PILLS;?
     Route: 048
  2. MIRACLE MINERAL SOLUTION [Concomitant]
     Active Substance: SODIUM CHLORITE
  3. MMS2 400MG MMS PRODUCTS INTERNATIONAL [Suspect]
     Active Substance: CALCIUM HYPOCHLORITE
     Indication: PRODUCT USED FOR UNKNOWN INDICATION
     Dosage: ?          OTHER DOSE:2 PILLS;?
     Route: 048

REACTIONS (7)
  - Sensory disturbance [None]
  - Neuropathy peripheral [None]
  - Poor peripheral circulation [None]
  - Refusal of treatment by patient [None]
  - Dementia [None]
  - General physical health deterioration [None]
  - Skin discolouration [None]

NARRATIVE: CASE EVENT DATE: 20160317
